FAERS Safety Report 16008466 (Version 2)
Quarter: 2019Q1

REPORT INFORMATION
  Report Type: Spontaneous
  Country: US (occurrence: US)
  Receive Date: 20190225
  Receipt Date: 20190225
  Transmission Date: 20190418
  Serious: Yes (Other)
  Sender: FDA-Public Use
  Company Number: PHHY2019US039764

PATIENT

DRUGS (2)
  1. PREDNISONE. [Concomitant]
     Active Substance: PREDNISONE
     Indication: OVERLAP SYNDROME
     Dosage: UNK
     Route: 065
  2. HYDROXYCHLOROQUINE [Suspect]
     Active Substance: HYDROXYCHLOROQUINE
     Indication: OVERLAP SYNDROME
     Dosage: UNK
     Route: 065

REACTIONS (4)
  - Pyomyositis [Unknown]
  - Tuberculosis [Unknown]
  - Oedema peripheral [Unknown]
  - Product use in unapproved indication [Unknown]
